FAERS Safety Report 5988740-4 (Version None)
Quarter: 2008Q4

REPORT INFORMATION
  Report Type: 
  Country: None (occurrence: None)
  Receive Date: 20081210
  Receipt Date: 20081203
  Transmission Date: 20090506
  Serious: Yes (Other)
  Sender: FDA-Public Use
  Company Number: PHHY2008FI23199

PATIENT
  Sex: Female

DRUGS (19)
  1. ACLASTA [Suspect]
     Indication: OSTEOPOROSIS
     Dosage: 5 MG
     Dates: start: 20070427
  2. NEURONTIN [Concomitant]
     Dosage: UNK
  3. LAMICTAL [Concomitant]
     Dosage: UNK
  4. SYMBICORT [Concomitant]
     Dosage: 2 DF, BID
  5. HYDROCORTISONE [Concomitant]
     Dosage: UNK
  6. PAROXETINE HCL [Concomitant]
     Dosage: UNK
  7. MIRAL [Concomitant]
     Dosage: 1 TABLET EVERY OTHER DAY
  8. IDEOS [Concomitant]
     Dosage: 2 DF, BID
  9. PANADOL FORTE [Concomitant]
     Dosage: UNK
  10. BEREX [Concomitant]
     Dosage: 1 TABLET DAILY
  11. NEXIUM [Concomitant]
     Dosage: UNK
  12. MULTITABS [Concomitant]
     Dosage: 1 TABLET DAILY
  13. DOLMED [Concomitant]
     Dosage: UNK
  14. TRIPTYL [Concomitant]
     Dosage: UNK
  15. IMOVANE [Concomitant]
     Dosage: 7.5 MG WHEN NEEDED
  16. BRICANYL [Concomitant]
     Dosage: 0.25 MG WHEN NEEDED
  17. KLACID [Concomitant]
     Dosage: ONE 250 MG TABLET
  18. BURANA [Concomitant]
     Dosage: UNK
  19. DIAPAM [Concomitant]
     Dosage: UNK

REACTIONS (9)
  - BODY TEMPERATURE INCREASED [None]
  - CONFUSIONAL STATE [None]
  - DISORIENTATION [None]
  - DYSPNOEA [None]
  - HEAD DISCOMFORT [None]
  - HEADACHE [None]
  - HERPES VIRUS INFECTION [None]
  - MEMORY IMPAIRMENT [None]
  - PANIC DISORDER [None]
